FAERS Safety Report 10785783 (Version 1)
Quarter: 2015Q1

REPORT INFORMATION
  Report Type: Spontaneous
  Country: US (occurrence: US)
  Receive Date: 20150211
  Receipt Date: 20150211
  Transmission Date: 20150721
  Serious: Yes (Hospitalization)
  Sender: FDA-Public Use
  Company Number: US-MYLANLABS-2015M1003608

PATIENT

DRUGS (2)
  1. LIOTHYRONINE [Suspect]
     Active Substance: LIOTHYRONINE
     Dosage: 25MCG TABLETS; INCREASED TO 4 TABLETS DAILY
     Route: 065
  2. LIOTHYRONINE [Suspect]
     Active Substance: LIOTHYRONINE
     Dosage: 4X25MCG TABLETS DAILY (100MCG)
     Route: 065

REACTIONS (2)
  - Overdose [Recovered/Resolved]
  - Thyrotoxic periodic paralysis [Recovered/Resolved]
